FAERS Safety Report 6293105-4 (Version None)
Quarter: 2009Q3

REPORT INFORMATION
  Report Type: 
  Country: None (occurrence: None)
  Receive Date: 20090731
  Receipt Date: 20090722
  Transmission Date: 20100115
  Serious: Yes (Other)
  Sender: FDA-Public Use
  Company Number: PHHY2009BR30901

PATIENT
  Age: 54 Year
  Sex: Female
  Weight: 58 kg

DRUGS (4)
  1. CATAFLAM [Suspect]
     Indication: OSTEITIS
     Dosage: UNK DF, Q8H
     Route: 048
  2. CATAFLAM [Suspect]
     Indication: GINGIVAL SWELLING
  3. CATAFLAM [Suspect]
     Indication: UPPER RESPIRATORY TRACT INFLAMMATION
  4. AMOXICILLIN [Concomitant]
     Dosage: 500 MG, Q12H

REACTIONS (2)
  - PROCEDURAL PAIN [None]
  - TOOTH EXTRACTION [None]
